FAERS Safety Report 6318598-5 (Version None)
Quarter: 2009Q3

REPORT INFORMATION
  Report Type: 
  Country: None (occurrence: None)
  Receive Date: 20090821
  Receipt Date: 20090810
  Transmission Date: 20100115
  Serious: Yes (Hospitalization, Other)
  Sender: FDA-Public Use
  Company Number: US-ELI_LILLY_AND_COMPANY-US200908002167

PATIENT
  Sex: Female

DRUGS (2)
  1. CYMBALTA [Suspect]
     Indication: DEPRESSION
     Dosage: 60 MG, DAILY (1/D)
  2. PLAVIX [Concomitant]
     Dosage: 75 MG, UNK

REACTIONS (3)
  - FACTOR X DEFICIENCY [None]
  - MOUTH HAEMORRHAGE [None]
  - TONGUE INJURY [None]
